FAERS Safety Report 17728034 (Version 1)
Quarter: 2020Q2

REPORT INFORMATION
  Report Type: Spontaneous
  Country: US (occurrence: US)
  Receive Date: 20200429
  Receipt Date: 20200429
  Transmission Date: 20200714
  Serious: Yes (Hospitalization, Other)
  Sender: FDA-Public Use
  Company Number: None

PATIENT
  Age: 77 Year
  Sex: Female
  Weight: 95.5 kg

DRUGS (1)
  1. PEMBROLIZUMAB IV INJECTION [Suspect]
     Active Substance: PEMBROLIZUMAB
     Indication: LUNG NEOPLASM MALIGNANT
     Dates: start: 20191017, end: 20200310

REACTIONS (1)
  - Chronic gastritis [None]

NARRATIVE: CASE EVENT DATE: 20200416
